FAERS Safety Report 8927447 (Version 1)
Quarter: 2012Q4

REPORT INFORMATION
  Report Type: 
  Country: US (occurrence: US)
  Receive Date: 20121127
  Receipt Date: 20121127
  Transmission Date: 20130627
  Serious: Yes (Other)
  Sender: FDA-Public Use
  Company Number: US-BAYER-2012-122585

PATIENT
  Age: 43 Year
  Sex: Female
  Weight: 88.44 kg

DRUGS (6)
  1. YASMIN [Suspect]
  2. TRIAMCINOLONE [Concomitant]
     Dosage: 0.025 %, UNK
     Dates: start: 20061015
  3. THYROID [Concomitant]
     Dosage: 65 mg, UNK
     Dates: start: 20061122
  4. THYROID [Concomitant]
     Dosage: 60 mg, UNK
     Dates: start: 20061221
  5. METHYLPREDNISOLONE [METHYLPREDNISOLONE] [Concomitant]
     Dosage: 4 mg, UNK
     Dates: start: 20070131
  6. IBUPROFEN [Concomitant]
     Dosage: 800 mg, TID

REACTIONS (1)
  - Thrombophlebitis superficial [None]
